FAERS Safety Report 13887229 (Version 1)
Quarter: 2017Q3

REPORT INFORMATION
  Report Type: Spontaneous
  Country: US (occurrence: US)
  Receive Date: 20170821
  Receipt Date: 20170821
  Transmission Date: 20171127
  Serious: Yes (Other)
  Sender: FDA-Public Use
  Company Number: US-MYLANLABS-2017M1051314

PATIENT

DRUGS (1)
  1. CARBIDOPA AND LEVODOPA EXTENDED-RELEASE TABLETS [Suspect]
     Active Substance: CARBIDOPA\LEVODOPA
     Indication: PRODUCT USED FOR UNKNOWN INDICATION
     Dosage: UNK

REACTIONS (3)
  - Wrong technique in product usage process [Unknown]
  - Coeliac disease [Unknown]
  - Feeling abnormal [Unknown]
